FAERS Safety Report 5603383-X (Version None)
Quarter: 2008Q1

REPORT INFORMATION
  Report Type: 
  Country: None (occurrence: None)
  Receive Date: 20080122
  Receipt Date: 20080107
  Transmission Date: 20080703
  Serious: Yes (Hospitalization)
  Sender: FDA-Public Use
  Company Number: S08-SWE-00178-01

PATIENT
  Age: 81 Year
  Sex: Female

DRUGS (11)
  1. CITALOPRAM HYDROBROMIDE [Suspect]
     Indication: DEPRESSION
     Dosage: 20 MG QD PO
     Route: 048
     Dates: start: 19990101
  2. ASPIRIN [Suspect]
     Dosage: 75 MG QD PO
     Route: 048
     Dates: start: 19930101
  3. PREDNISOLONE [Suspect]
     Dosage: 10 MG TID PO
     Route: 048
     Dates: start: 20070827
  4. RISPERDAL [Concomitant]
  5. TRUSOPT [Concomitant]
  6. ACETAMINOPHEN [Concomitant]
  7. BEHEPAN (CYANOCOBALAMIN) [Concomitant]
  8. LEVOTHYROXINE SODIUM [Concomitant]
  9. IMDUR [Concomitant]
  10. SPIRONLAKTION (SPIRONOLACTONE) [Concomitant]
  11. XALATAN [Concomitant]

REACTIONS (4)
  - GASTRIC ULCER [None]
  - INAPPROPRIATE SCHEDULE OF DRUG ADMINISTRATION [None]
  - INCORRECT DOSE ADMINISTERED [None]
  - MEDICATION ERROR [None]
